FAERS Safety Report 6100052-7 (Version None)
Quarter: 2009Q1

REPORT INFORMATION
  Report Type: 
  Country: None (occurrence: None)
  Receive Date: 20090303
  Receipt Date: 20090225
  Transmission Date: 20090719
  Serious: Yes (Other)
  Sender: FDA-Public Use
  Company Number: B0561608A

PATIENT
  Sex: Female

DRUGS (1)
  1. AUGMENTIN '125' [Suspect]
     Route: 065

REACTIONS (4)
  - OROPHARYNGEAL PAIN [None]
  - PHOTOPSIA [None]
  - PYREXIA [None]
  - VISUAL IMPAIRMENT [None]
